FAERS Safety Report 6661328-8 (Version None)
Quarter: 2010Q1

REPORT INFORMATION
  Report Type: 
  Country: None (occurrence: None)
  Receive Date: 20100331
  Receipt Date: 20100329
  Transmission Date: 20100710
  Serious: Yes (Death, Hospitalization, Other)
  Sender: FDA-Public Use
  Company Number: PHEH2010US02702

PATIENT
  Sex: Male

DRUGS (15)
  1. GLEEVEC [Suspect]
     Indication: GASTROINTESTINAL STROMAL TUMOUR
     Dosage: 400 MG, QD
     Route: 048
  2. DARVOCET-N 100 [Concomitant]
     Route: 048
  3. AMLODIPINE BESYLATE [Concomitant]
     Route: 048
  4. CHOLESTYRAMINE RESIN [Concomitant]
  5. PLAVIX [Concomitant]
     Route: 048
  6. TOPROL-XL [Concomitant]
     Route: 048
  7. VITAMIN B-12 [Concomitant]
     Route: 048
  8. ASPIRIN [Concomitant]
     Route: 048
  9. SAW PALMETTO [Concomitant]
     Route: 048
  10. SODIUM BICARBONATE [Concomitant]
     Route: 048
  11. NEPHROCAPS [Concomitant]
     Route: 048
  12. SYNTHROID [Concomitant]
     Route: 048
  13. LEXAPRO [Concomitant]
     Route: 048
  14. VITAMIN D [Concomitant]
     Route: 048
  15. CLONAZEPAM [Concomitant]
     Route: 048

REACTIONS (11)
  - AORTIC ANEURYSM [None]
  - ASTHENIA [None]
  - BLOOD PRESSURE INCREASED [None]
  - DIALYSIS [None]
  - FATIGUE [None]
  - HAEMOGLOBIN DECREASED [None]
  - METASTASES TO LIVER [None]
  - PLEURAL EFFUSION [None]
  - RASH [None]
  - RENAL FAILURE CHRONIC [None]
  - RESPIRATORY FAILURE [None]
